FAERS Safety Report 22079540 (Version 1)
Quarter: 2023Q1

REPORT INFORMATION
  Report Type: Spontaneous
  Country: US (occurrence: US)
  Receive Date: 20230309
  Receipt Date: 20230309
  Transmission Date: 20230418
  Serious: No
  Sender: FDA-Public Use
  Company Number: US-PFIZER INC-202300094324

PATIENT
  Age: 74 Year
  Sex: Female

DRUGS (1)
  1. PAXLOVID [Suspect]
     Active Substance: NIRMATRELVIR\RITONAVIR
     Indication: COVID-19 treatment
     Dosage: UNK
     Dates: start: 2023

REACTIONS (9)
  - Abdominal distension [Unknown]
  - Nausea [Unknown]
  - Pain [Unknown]
  - Condition aggravated [Unknown]
  - Abdominal pain upper [Unknown]
  - Eructation [Recovering/Resolving]
  - Feeling abnormal [Unknown]
  - Chest pain [Unknown]
  - Bladder disorder [Unknown]
